FAERS Safety Report 16217706 (Version 1)
Quarter: 2019Q2

REPORT INFORMATION
  Report Type: Spontaneous
  Country: US (occurrence: US)
  Receive Date: 20190419
  Receipt Date: 20190419
  Transmission Date: 20190711
  Serious: No
  Sender: FDA-Public Use
  Company Number: US-SA-2019SA106614

PATIENT
  Age: 75 Year
  Sex: Male

DRUGS (4)
  1. TOUJEO [Suspect]
     Active Substance: INSULIN GLARGINE
     Indication: TYPE 2 DIABETES MELLITUS
     Dosage: 80 U, QD, EACH DAY
  2. TOUJEO [Suspect]
     Active Substance: INSULIN GLARGINE
     Dosage: 60 U, UNK
  3. TOUJEO [Suspect]
     Active Substance: INSULIN GLARGINE
     Dosage: 100 UNK
  4. TRULICITY [Concomitant]
     Active Substance: DULAGLUTIDE

REACTIONS (1)
  - Knee operation [Unknown]
